FAERS Safety Report 5620726-1 (Version None)
Quarter: 2008Q1

REPORT INFORMATION
  Report Type: 
  Country: None (occurrence: None)
  Receive Date: 20080208
  Receipt Date: 20080206
  Transmission Date: 20080703
  Serious: Yes (Disabling)
  Sender: FDA-Public Use
  Company Number: GB-MERCK-0802GBR00022

PATIENT
  Age: 48 Year
  Sex: Female
  Weight: 111 kg

DRUGS (7)
  1. ZOCOR [Suspect]
     Indication: HYPERCHOLESTEROLAEMIA
     Route: 048
     Dates: start: 20060907, end: 20071205
  2. ZOCOR [Suspect]
     Route: 048
     Dates: start: 20080101
  3. ASPIRIN [Concomitant]
     Route: 048
     Dates: start: 20021002
  4. ESTRADIOL [Concomitant]
     Route: 065
     Dates: start: 20071221
  5. METFORMIN [Concomitant]
     Route: 048
     Dates: start: 20020501
  6. NORETHINDRONE [Concomitant]
     Route: 048
     Dates: start: 20070221
  7. ALBUTEROL [Concomitant]
     Dates: start: 20020719

REACTIONS (5)
  - CONFUSIONAL STATE [None]
  - DEPRESSION [None]
  - DISTURBANCE IN ATTENTION [None]
  - MEMORY IMPAIRMENT [None]
  - POLYURIA [None]
